FAERS Safety Report 11081882 (Version 1)
Quarter: 2015Q2

REPORT INFORMATION
  Report Type: Report from Study
  Country: CO (occurrence: CO)
  Receive Date: 20150501
  Receipt Date: 20150501
  Transmission Date: 20150821
  Serious: No
  Sender: FDA-Public Use
  Company Number: PHHY2015CO052544

PATIENT
  Sex: Female

DRUGS (3)
  1. ALENDRONATE [Concomitant]
     Active Substance: ALENDRONATE SODIUM
     Indication: OSTEOPOROSIS
     Dosage: 70 MG, EVERY 8 DAYS
     Route: 065
  2. SPRYCEL [Concomitant]
     Active Substance: DASATINIB
     Indication: CHRONIC MYELOID LEUKAEMIA
     Dosage: 100 MG, QD
     Route: 065
  3. TASIGNA [Suspect]
     Active Substance: NILOTINIB
     Indication: CHRONIC MYELOID LEUKAEMIA
     Dosage: 200 MG, QID (2 IN THE MORNING AND 2 AT NIGHT)
     Route: 065

REACTIONS (6)
  - Gingival bleeding [Unknown]
  - Drug intolerance [Unknown]
  - Pruritus generalised [Unknown]
  - Migraine [Unknown]
  - Alopecia [Unknown]
  - Dry skin [Unknown]
